FAERS Safety Report 5836111-3 (Version None)
Quarter: 2008Q3

REPORT INFORMATION
  Report Type: 
  Country: None (occurrence: None)
  Receive Date: 20080805
  Receipt Date: 20080724
  Transmission Date: 20090109
  Serious: Yes (Hospitalization)
  Sender: FDA-Public Use
  Company Number: 90079

PATIENT
  Age: 61 Year
  Sex: Male

DRUGS (10)
  1. NAPROXEN SODIUM [Suspect]
     Dates: end: 20080625
  2. ASPIRIN [Concomitant]
  3. BUPRENORPHINE HCL [Concomitant]
  4. CEPHALEXIN [Concomitant]
  5. FUROSEMIDE [Concomitant]
  6. MULTI-VITAMIN [Concomitant]
  7. OMEPRAZOLE [Concomitant]
  8. ACETAMINOPHEN [Concomitant]
  9. SENNA [Concomitant]
  10. SPIRONOLACTONE [Concomitant]

REACTIONS (1)
  - UPPER GASTROINTESTINAL HAEMORRHAGE [None]
